FAERS Safety Report 4966189-0 (Version None)
Quarter: 2006Q2

REPORT INFORMATION
  Report Type: 
  Country: None (occurrence: None)
  Receive Date: 20060407
  Receipt Date: 20060323
  Transmission Date: 20061013
  Serious: Yes (Life-Threatening, Disabling)
  Sender: FDA-Public Use
  Company Number: JP-MERCK-0603USA04240

PATIENT
  Age: 65 Year
  Sex: Male
  Weight: 82 kg

DRUGS (6)
  1. COZAAR [Suspect]
     Indication: HYPERTENSION
     Route: 048
     Dates: start: 20020117, end: 20060316
  2. PETROLATUM, WHITE [Concomitant]
     Indication: ECZEMA ASTEATOTIC
     Route: 061
     Dates: start: 20060105
  3. HICEE [Concomitant]
     Indication: ECZEMA ASTEATOTIC
     Route: 048
     Dates: start: 20050217
  4. TRANSAMIN [Concomitant]
     Indication: ECZEMA ASTEATOTIC
     Route: 048
     Dates: start: 20050217
  5. [COMPOSITION UNSPECIFIED] [Concomitant]
     Indication: ECZEMA ASTEATOTIC
     Route: 061
     Dates: start: 20060105
  6. TOKUDERM [Concomitant]
     Indication: ECZEMA ASTEATOTIC
     Route: 065
     Dates: start: 20060105

REACTIONS (3)
  - BLOOD GLUCOSE DECREASED [None]
  - DEPRESSED LEVEL OF CONSCIOUSNESS [None]
  - PANCREATIC NEOPLASM [None]
